FAERS Safety Report 4766058-5 (Version None)
Quarter: 2005Q3

REPORT INFORMATION
  Report Type: 
  Country: None (occurrence: None)
  Receive Date: 20050912
  Receipt Date: 20050831
  Transmission Date: 20060218
  Serious: Yes (Other)
  Sender: FDA-Public Use
  Company Number: PHBS2005BR12863

PATIENT
  Age: 72 Year
  Sex: Female

DRUGS (4)
  1. ZOMETA [Suspect]
     Indication: METASTASES TO BONE
     Dosage: 4 MG, QMO
     Route: 042
     Dates: start: 20020423, end: 20050401
  2. TAXOL [Concomitant]
     Route: 065
  3. NOLVADEX [Concomitant]
     Route: 065
  4. ARIMIDEX [Concomitant]
     Route: 065

REACTIONS (9)
  - ABSCESS [None]
  - ABSCESS DRAINAGE [None]
  - ASEPTIC NECROSIS BONE [None]
  - BONE DISORDER [None]
  - FISTULA [None]
  - GINGIVITIS [None]
  - PAIN IN JAW [None]
  - PAROTID GLAND ENLARGEMENT [None]
  - TOOTH EXTRACTION [None]
